FAERS Safety Report 10364570 (Version 1)
Quarter: 2014Q3

REPORT INFORMATION
  Report Type: Spontaneous
  Country: US (occurrence: US)
  Receive Date: 20140806
  Receipt Date: 20140806
  Transmission Date: 20150326
  Serious: Yes (Other)
  Sender: FDA-Public Use
  Company Number: US-BAYER-2014-111525

PATIENT
  Age: 37 Year
  Sex: Male

DRUGS (1)
  1. BETASERON [Suspect]
     Active Substance: INTERFERON BETA-1B
     Indication: MULTIPLE SCLEROSIS
     Dosage: 0.25 MG, QOD
     Route: 058
     Dates: start: 200701

REACTIONS (3)
  - Paraesthesia [None]
  - Multiple sclerosis relapse [None]
  - Hypoaesthesia [None]

NARRATIVE: CASE EVENT DATE: 201407
